FAERS Safety Report 17298515 (Version 1)
Quarter: 2020Q1

REPORT INFORMATION
  Report Type: Spontaneous
  Country: CN (occurrence: CN)
  Receive Date: 20200122
  Receipt Date: 20200122
  Transmission Date: 20200409
  Serious: Yes (Other)
  Sender: FDA-Public Use
  Company Number: CN-BAYER-2019-081439

PATIENT
  Age: 35 Year
  Sex: Female

DRUGS (1)
  1. YASMIN [Suspect]
     Active Substance: DROSPIRENONE\ETHINYL ESTRADIOL
     Indication: MENSTRUAL CYCLE MANAGEMENT
     Dosage: UNK
     Route: 048
     Dates: start: 2019

REACTIONS (9)
  - Feeling abnormal [None]
  - Product use in unapproved indication [None]
  - Fall [None]
  - Pregnancy on oral contraceptive [None]
  - Suspected counterfeit product [None]
  - Off label use [None]
  - Drug ineffective [None]
  - Abortion spontaneous [Recovered/Resolved]
  - Abnormal withdrawal bleeding [None]

NARRATIVE: CASE EVENT DATE: 2019
